FAERS Safety Report 4727058-4 (Version None)
Quarter: 2005Q3

REPORT INFORMATION
  Report Type: 
  Country: None (occurrence: None)
  Receive Date: 20050728
  Receipt Date: 20050707
  Transmission Date: 20060218
  Serious: Yes (Death)
  Sender: FDA-Public Use
  Company Number: 2005CG01235

PATIENT
  Age: 20619 Day
  Sex: Male
  Weight: 80 kg

DRUGS (6)
  1. CRESTOR [Suspect]
     Indication: HYPERLIPIDAEMIA
     Route: 048
     Dates: start: 20050606
  2. EZETROL [Suspect]
     Indication: HYPERLIPIDAEMIA
     Route: 048
     Dates: start: 20050607
  3. TENORMIN [Concomitant]
     Route: 048
     Dates: start: 19920101
  4. COVERSYL [Concomitant]
     Route: 048
     Dates: start: 19920101
  5. ADALATE LP [Concomitant]
     Route: 048
     Dates: start: 19920101
  6. PLAVIX [Concomitant]
     Route: 048
     Dates: start: 19920101

REACTIONS (3)
  - ARTERIOPATHIC DISEASE [None]
  - PAIN IN EXTREMITY [None]
  - SUDDEN DEATH [None]
